FAERS Safety Report 23304335 (Version 1)
Quarter: 2023Q4

REPORT INFORMATION
  Report Type: Spontaneous
  Country: US (occurrence: US)
  Receive Date: 20231218
  Receipt Date: 20231218
  Transmission Date: 20240110
  Serious: Yes (Other)
  Sender: FDA-Public Use
  Company Number: US-AUROBINDO-AUR-APL-2023-077968

PATIENT
  Age: 62 Year
  Sex: Female

DRUGS (2)
  1. AZACITIDINE [Suspect]
     Active Substance: AZACITIDINE
     Indication: Acute myelomonocytic leukaemia
     Dosage: UNK
     Route: 065
  2. ETOPOSIDE [Concomitant]
     Active Substance: ETOPOSIDE
     Indication: Breast cancer
     Dosage: UNK
     Route: 065

REACTIONS (1)
  - Drug ineffective [Unknown]
